FAERS Safety Report 18277385 (Version 1)
Quarter: 2020Q3

REPORT INFORMATION
  Report Type: Spontaneous
  Country: PL (occurrence: PL)
  Receive Date: 20200917
  Receipt Date: 20200917
  Transmission Date: 20201103
  Serious: Yes (Hospitalization, Other)
  Sender: FDA-Public Use
  Company Number: NVSC2020PL249403

PATIENT
  Age: 32 Year
  Sex: Male
  Weight: 80 kg

DRUGS (3)
  1. AMOXICILLIN,CLAVULANIC ACID [Suspect]
     Active Substance: AMOXICILLIN\CLAVULANIC ACID
     Indication: NASOPHARYNGITIS
     Dosage: UNK
     Route: 065
  2. AMOXICILLIN,CLAVULANIC ACID [Suspect]
     Active Substance: AMOXICILLIN\CLAVULANIC ACID
     Indication: OROPHARYNGEAL PAIN
  3. AMOXICILLIN,CLAVULANIC ACID [Suspect]
     Active Substance: AMOXICILLIN\CLAVULANIC ACID
     Indication: RHINORRHOEA

REACTIONS (35)
  - Dyspnoea at rest [Unknown]
  - Dry skin [Unknown]
  - Pallor [Recovering/Resolving]
  - Troponin increased [Unknown]
  - Fluid overload [Recovering/Resolving]
  - Ejection fraction decreased [Recovering/Resolving]
  - Mitral valve incompetence [Unknown]
  - Pericardial effusion [Unknown]
  - Cardiogenic shock [Recovering/Resolving]
  - Congestive cardiomyopathy [Recovering/Resolving]
  - Dyspnoea [Unknown]
  - Hepatomegaly [Unknown]
  - Left ventricular hypertrophy [Recovering/Resolving]
  - Pulmonary hypertension [Recovered/Resolved]
  - Thrombosis [Recovered/Resolved]
  - Respiratory rate increased [Unknown]
  - General physical condition abnormal [Recovering/Resolving]
  - Sinus tachycardia [Recovering/Resolving]
  - Hypoperfusion [Recovering/Resolving]
  - Tricuspid valve incompetence [Unknown]
  - Hypotension [Recovered/Resolved]
  - Cardiac failure [Recovering/Resolving]
  - Asthenia [Unknown]
  - N-terminal prohormone brain natriuretic peptide increased [Recovered/Resolved]
  - Left ventricular dysfunction [Recovering/Resolving]
  - Feeling abnormal [Unknown]
  - Tachycardia [Recovering/Resolving]
  - Oedema [Recovered/Resolved]
  - Cardiac failure chronic [Recovering/Resolving]
  - Atrioventricular block first degree [Recovering/Resolving]
  - Electrocardiogram QT prolonged [Unknown]
  - Glomerular filtration rate decreased [Recovered/Resolved]
  - Electrocardiogram ST segment elevation [Unknown]
  - Blood creatinine increased [Recovered/Resolved]
  - Oliguria [Unknown]
